FAERS Safety Report 18474102 (Version 1)
Quarter: 2020Q4

REPORT INFORMATION
  Report Type: Spontaneous
  Country: US (occurrence: US)
  Receive Date: 20201106
  Receipt Date: 20201106
  Transmission Date: 20210114
  Serious: Yes (Death)
  Sender: FDA-Public Use
  Company Number: None

PATIENT
  Age: 71 Year
  Sex: Female

DRUGS (4)
  1. KEPPRA, BACLOFEN, OYST-CAL, CALCIUM [Concomitant]
  2. POTASSIUM CITRATE, METOPROLOL SUCCINATE, AMIODARONE, OXYBUTYNIN [Concomitant]
  3. PROLIA [Suspect]
     Active Substance: DENOSUMAB
     Indication: OSTEOPOROSIS
     Dosage: ?          OTHER FREQUENCY:EVERY SIX MONTHS;?
     Route: 058
     Dates: start: 20180612, end: 20200729
  4. LEVETIRACETMINE, DILANTIN, PREDNISONE, NITROFURANTIN, LORAZEPAM [Concomitant]

REACTIONS (1)
  - Death [None]

NARRATIVE: CASE EVENT DATE: 20200729
